FAERS Safety Report 4823445-4 (Version None)
Quarter: 2005Q4

REPORT INFORMATION
  Report Type: 
  Country: None (occurrence: None)
  Receive Date: 20051107
  Receipt Date: 20051025
  Transmission Date: 20060501
  Serious: Yes (Life-Threatening, Hospitalization, Disabling)
  Sender: FDA-Public Use
  Company Number: GXKR2005FR01857

PATIENT
  Age: 48 Year
  Sex: Female
  Weight: 60 kg

DRUGS (6)
  1. PARACETAMOL (NGX) (PARACETAMOL) [Suspect]
     Dosage: 1 G, ORAL
     Route: 048
     Dates: start: 20010401
  2. EXOLISE (CAMELLIA SINENSIS, TEA, GREEN) [Suspect]
     Indication: WEIGHT DECREASED
     Dosage: ORAL
     Route: 048
     Dates: start: 20010311, end: 20010401
  3. FOOD SUPPLEMENT (FOOD SUPPLEMENT) [Suspect]
     Dosage: ORAL
     Route: 048
     Dates: start: 20010417
  4. SERMION (NICERGOLINE) [Suspect]
     Indication: VERTIGO
     Dosage: 30 MG
     Dates: start: 20010401, end: 20010423
  5. TRIVASTAL (PIRIBEDIL) [Suspect]
     Indication: VERTIGO
     Dosage: 50 MG
     Dates: start: 20010401, end: 20010423
  6. SOLUPRED (PREDNISOLONE SODIUM SULFOBENZOATE) [Suspect]
     Indication: VERTIGO
     Dosage: 60 MG
     Dates: start: 20010401, end: 20010423

REACTIONS (7)
  - DEPRESSED LEVEL OF CONSCIOUSNESS [None]
  - FACTOR V DEFICIENCY [None]
  - HALLUCINATION, AUDITORY [None]
  - HEPATITIS FULMINANT [None]
  - HEPATOCELLULAR DAMAGE [None]
  - LIVER TRANSPLANT [None]
  - VERTIGO [None]
